FAERS Safety Report 16577832 (Version 1)
Quarter: 2019Q3

REPORT INFORMATION
  Report Type: Spontaneous
  Country: DE (occurrence: DE)
  Receive Date: 20190716
  Receipt Date: 20190716
  Transmission Date: 20191004
  Serious: Yes (Life-Threatening, Hospitalization)
  Sender: FDA-Public Use
  Company Number: DE-TEVA-2019-DE-1078658

PATIENT
  Age: 29 Year
  Sex: Male

DRUGS (1)
  1. PREDNISOLONE. [Suspect]
     Active Substance: PREDNISOLONE
     Indication: INTERVERTEBRAL DISC PROTRUSION
     Dosage: 25 MILLIGRAM DAILY;
     Route: 048

REACTIONS (5)
  - Thrombocytopenia [Recovered/Resolved]
  - Acute respiratory distress syndrome [Recovered/Resolved]
  - Leptospirosis [Recovered/Resolved]
  - Pulmonary haemorrhage [Recovered/Resolved]
  - Anaemia [Recovered/Resolved]
